FAERS Safety Report 7910006-3 (Version None)
Quarter: 2011Q4

REPORT INFORMATION
  Report Type: 
  Country: None (occurrence: None)
  Receive Date: 20111111
  Receipt Date: 20111108
  Transmission Date: 20120403
  Serious: Yes (Hospitalization)
  Sender: FDA-Public Use
  Company Number: US-ELI_LILLY_AND_COMPANY-US201110003607

PATIENT
  Sex: Male
  Weight: 84.354 kg

DRUGS (21)
  1. LECITHIN [Concomitant]
  2. ASCORBIC ACID [Concomitant]
     Dosage: 1000 MG, UNK
  3. COREG [Concomitant]
     Dosage: 12.5 MG, UNK
  4. OXYCODONE HCL AND ACETAMINOPHEN [Concomitant]
  5. PROAIR HFA [Concomitant]
  6. LASIX [Concomitant]
     Dosage: 40 MG, UNK
  7. COUMADIN [Concomitant]
     Dosage: 3 MG, UNK
  8. AUGMENTIN '125' [Concomitant]
  9. FLONASE [Concomitant]
     Dosage: UNK
  10. GENTAMICIN [Concomitant]
     Route: 055
  11. ADVAIR DISKUS 100/50 [Concomitant]
  12. TRACLEER [Concomitant]
  13. CARDIZEM CD [Concomitant]
  14. MUCINEX DM [Concomitant]
  15. BENICAR HCT [Concomitant]
     Dosage: UNK
  16. ALLEGRA [Concomitant]
     Dosage: 180 MG, QD
  17. ALDACTONE [Concomitant]
     Dosage: 25 MG, UNK
  18. ADCIRCA [Suspect]
     Indication: PULMONARY ARTERIAL HYPERTENSION
     Dosage: 40 MG, QD
     Route: 048
     Dates: start: 20110615
  19. LANOXIN [Concomitant]
     Dosage: 0.25 MG, UNK
  20. ASPIRIN [Concomitant]
     Dosage: 81 MG, UNK
  21. LIDOCAINE [Concomitant]
     Route: 055

REACTIONS (1)
  - HERNIA [None]
